FAERS Safety Report 6786029-7 (Version None)
Quarter: 2010Q2

REPORT INFORMATION
  Report Type: 
  Country: None (occurrence: None)
  Receive Date: 20100621
  Receipt Date: 20100621
  Transmission Date: 20101027
  Serious: No
  Sender: FDA-Public Use
  Company Number: None

PATIENT
  Age: 88 Year
  Sex: Male
  Weight: 80.7 kg

DRUGS (2)
  1. DONEPEZIL HCL [Suspect]
     Indication: DEMENTIA
     Dosage: 10 MG HS PO
     Route: 048
     Dates: start: 20091014, end: 20100101
  2. NAPROXEN [Suspect]
     Indication: PAIN

REACTIONS (1)
  - GASTRIC HAEMORRHAGE [None]
